FAERS Safety Report 9088005 (Version 2)
Quarter: 2013Q1

REPORT INFORMATION
  Report Type: Spontaneous
  Country: JP (occurrence: JP)
  Receive Date: 20130131
  Receipt Date: 20130220
  Transmission Date: 20140127
  Serious: Yes (Life-Threatening)
  Sender: FDA-Public Use
  Company Number: JP-ELI_LILLY_AND_COMPANY-JP201301009164

PATIENT
  Age: 69 Year
  Sex: Male
  Weight: 62.8 kg

DRUGS (7)
  1. GEMZAR [Suspect]
     Indication: PANCREATIC CARCINOMA RECURRENT
     Dosage: 1200 MG, UNK
     Route: 042
     Dates: start: 20120621, end: 20130124
  2. OXYGEN [Concomitant]
  3. ASPIRIN [Concomitant]
     Indication: CEREBRAL INFARCTION
     Dosage: 100 MG, QD
     Route: 048
  4. PLETAL [Concomitant]
     Indication: CEREBRAL INFARCTION
     Dosage: 100 MG, BID
     Route: 048
  5. BLOSTAR M [Concomitant]
     Indication: CEREBRAL INFARCTION
     Dosage: 20 MG, UNK
     Route: 048
  6. NOVORAPID [Concomitant]
     Indication: DIABETES MELLITUS
     Dosage: UNK
     Route: 058
  7. LANTUS [Concomitant]
     Indication: DIABETES MELLITUS
     Dosage: 4 IU, QD
     Route: 058

REACTIONS (2)
  - Wheezing [Recovered/Resolved]
  - Pyrexia [Unknown]
